FAERS Safety Report 6651951-9 (Version None)
Quarter: 2010Q1

REPORT INFORMATION
  Report Type: 
  Country: None (occurrence: None)
  Receive Date: 20100325
  Receipt Date: 20100317
  Transmission Date: 20100710
  Serious: Yes (Hospitalization, Other)
  Sender: FDA-Public Use
  Company Number: JP-JNJFOC-20091003898

PATIENT
  Sex: Male
  Weight: 29 kg

DRUGS (9)
  1. RISPERDAL [Suspect]
     Indication: AUTISM
     Route: 048
  2. RISPERDAL [Suspect]
     Route: 048
  3. RISPERDAL [Suspect]
     Route: 048
  4. RISPERDAL [Suspect]
     Indication: ABNORMAL BEHAVIOUR
     Route: 048
  5. RISPERDAL [Suspect]
     Route: 048
  6. RISPERDAL [Suspect]
     Route: 048
  7. RIZE [Suspect]
     Indication: ABNORMAL BEHAVIOUR
     Route: 048
  8. RIZE [Suspect]
     Route: 048
  9. JU-KAMA [Suspect]
     Indication: CONSTIPATION
     Route: 048

REACTIONS (15)
  - BLOOD CREATINE PHOSPHOKINASE INCREASED [None]
  - BLOOD GLUCOSE INCREASED [None]
  - C-REACTIVE PROTEIN INCREASED [None]
  - DECREASED ACTIVITY [None]
  - DECREASED APPETITE [None]
  - HYPERTONIA [None]
  - HYPOKINESIA [None]
  - ILEUS PARALYTIC [None]
  - MYOTONIA [None]
  - RENAL FAILURE [None]
  - RHABDOMYOLYSIS [None]
  - SEDATION [None]
  - TREMOR [None]
  - URINE OUTPUT INCREASED [None]
  - VOMITING [None]
